FAERS Safety Report 6057614-5 (Version None)
Quarter: 2009Q1

REPORT INFORMATION
  Report Type: 
  Country: None (occurrence: None)
  Receive Date: 20090127
  Receipt Date: 20090127
  Transmission Date: 20090719
  Serious: No
  Sender: FDA-Public Use
  Company Number: None

PATIENT
  Age: 36 Year
  Sex: Female
  Weight: 102.5129 kg

DRUGS (1)
  1. BUDEPRION SR 150 MG TEVA [Suspect]
     Indication: DEPRESSION
     Dosage: 150 MG 1X DAILY PO
     Route: 048
     Dates: start: 20090105, end: 20090122

REACTIONS (7)
  - ANGER [None]
  - CONDITION AGGRAVATED [None]
  - CRYING [None]
  - DEPRESSION [None]
  - FEAR [None]
  - IRRITABILITY [None]
  - SUICIDAL IDEATION [None]
